FAERS Safety Report 13940234 (Version 2)
Quarter: 2017Q3

REPORT INFORMATION
  Report Type: Spontaneous
  Country: JP (occurrence: JP)
  Receive Date: 20170906
  Receipt Date: 20170920
  Transmission Date: 20171127
  Serious: Yes (Hospitalization)
  Sender: FDA-Public Use
  Company Number: PHJP2017JP027190

PATIENT
  Age: 10 Year
  Sex: Male

DRUGS (4)
  1. NEORAL [Suspect]
     Active Substance: CYCLOSPORINE
     Indication: IMMUNOSUPPRESSANT DRUG THERAPY
     Dosage: 50 MG, QD
     Route: 065
  2. METHYLPREDNISOLONE. [Concomitant]
     Active Substance: METHYLPREDNISOLONE
     Indication: PRODUCT USED FOR UNKNOWN INDICATION
     Dosage: 4 MG, QD
     Route: 065
  3. MYCOPHENOLATE MOFETIL. [Concomitant]
     Active Substance: MYCOPHENOLATE MOFETIL
     Indication: PRODUCT USED FOR UNKNOWN INDICATION
     Dosage: 750 MG, QD
     Route: 065
  4. NEORAL [Suspect]
     Active Substance: CYCLOSPORINE
     Indication: RENAL TRANSPLANT
     Dosage: 100 MG, QD
     Route: 065

REACTIONS (12)
  - Illusion [Unknown]
  - Viral myelitis [Unknown]
  - Blood creatine phosphokinase increased [Unknown]
  - Neck pain [Recovering/Resolving]
  - Pyrexia [Recovered/Resolved]
  - Hyperreflexia [Unknown]
  - Movement disorder [Recovering/Resolving]
  - Dysuria [Recovering/Resolving]
  - Pain [Unknown]
  - Urinary retention [Unknown]
  - Epstein-Barr virus infection [Unknown]
  - Pain in extremity [Recovering/Resolving]
